FAERS Safety Report 10236449 (Version 1)
Quarter: 2014Q2

REPORT INFORMATION
  Report Type: Spontaneous
  Country: US (occurrence: US)
  Receive Date: 20140613
  Receipt Date: 20140613
  Transmission Date: 20141212
  Serious: Yes (Hospitalization)
  Sender: FDA-Public Use
  Company Number: US-BRISTOL-MYERS SQUIBB COMPANY-20954020

PATIENT
  Age: 18 Year
  Sex: Male
  Weight: 73.92 kg

DRUGS (3)
  1. ABILIFY [Suspect]
     Indication: ANXIETY
  2. ZOLOFT [Concomitant]
  3. ATIVAN [Concomitant]

REACTIONS (2)
  - Psychotic disorder [Unknown]
  - Off label use [Unknown]
